FAERS Safety Report 18548682 (Version 1)
Quarter: 2020Q4

REPORT INFORMATION
  Report Type: Spontaneous
  Country: PT (occurrence: PT)
  Receive Date: 20201126
  Receipt Date: 20201126
  Transmission Date: 20210114
  Serious: Yes (Other)
  Sender: FDA-Public Use
  Company Number: PT-AUROBINDO-AUR-APL-2017-09737

PATIENT
  Age: 8 Year
  Sex: Male

DRUGS (2)
  1. PARACETAMOL [Suspect]
     Active Substance: ACETAMINOPHEN
     Dosage: 1 G, AT 14 YEARS OLD
     Route: 048
  2. PARACETAMOL [Suspect]
     Active Substance: ACETAMINOPHEN
     Indication: HEADACHE
     Dosage: 500 AT 8 YEARS OLD
     Route: 048

REACTIONS (4)
  - Urticaria [Unknown]
  - Angioedema [Unknown]
  - Anaphylactic reaction [Unknown]
  - Wheezing [Unknown]
